FAERS Safety Report 25647762 (Version 1)
Quarter: 2025Q3

REPORT INFORMATION
  Report Type: Spontaneous
  Country: US (occurrence: US)
  Receive Date: 20250806
  Receipt Date: 20250806
  Transmission Date: 20251020
  Serious: Yes (Life-Threatening, Hospitalization)
  Sender: SHILPA MEDICARE
  Company Number: US-MLMSERVICE-20250710-PI574218-00165-1

PATIENT
  Age: 30 Year
  Sex: Male

DRUGS (4)
  1. GEMCITABINE [Suspect]
     Active Substance: GEMCITABINE
     Indication: Testicular germ cell tumour
  2. GEMCITABINE [Suspect]
     Active Substance: GEMCITABINE
     Indication: Metastases to lung
  3. OXALIPLATIN [Concomitant]
     Active Substance: OXALIPLATIN
     Indication: Testis cancer
  4. OXALIPLATIN [Concomitant]
     Active Substance: OXALIPLATIN
     Indication: Metastases to lung

REACTIONS (2)
  - Pneumonitis [Unknown]
  - Acute respiratory failure [Unknown]
